FAERS Safety Report 5211038-9 (Version None)
Quarter: 2006Q4

REPORT INFORMATION
  Report Type: 
  Country: None (occurrence: None)
  Receive Date: 20061114
  Receipt Date: 20060802
  Transmission Date: 20070319
  Serious: No
  Sender: FDA-Public Use
  Company Number: S06-USA-03011-01

PATIENT
  Age: 76 Year
  Sex: Male

DRUGS (6)
  1. NAMENDA [Suspect]
     Indication: DEMENTIA ALZHEIMER'S TYPE
     Dosage: 5 MG QD PO
     Route: 048
     Dates: start: 20060628, end: 20060704
  2. NAMENDA [Suspect]
     Indication: DEMENTIA ALZHEIMER'S TYPE
     Dosage: 5 MG BID PO
     Route: 048
     Dates: start: 20060705, end: 20060711
  3. ARICEPT [Concomitant]
  4. TRIAMTERENE [Concomitant]
  5. NAMENDA [Suspect]
     Indication: DEMENTIA ALZHEIMER'S TYPE
     Dosage: 15 MG QD PO
     Route: 048
     Dates: start: 20060712, end: 20060718
  6. NAMENDA [Suspect]
     Indication: DEMENTIA ALZHEIMER'S TYPE
     Dosage: 10 MG BID PO
     Route: 048
     Dates: start: 20060719, end: 20060725

REACTIONS (2)
  - DIZZINESS [None]
  - PAIN [None]
